FAERS Safety Report 17016979 (Version 1)
Quarter: 2019Q4

REPORT INFORMATION
  Report Type: Spontaneous
  Country: US (occurrence: US)
  Receive Date: 20191004
  Receipt Date: 20191004
  Transmission Date: 20200122
  Serious: Yes (Hospitalization)
  Sender: FDA-Public Use
  Company Number: None

PATIENT
  Age: 55 Year
  Sex: Female

DRUGS (36)
  1. PREDNISONE. [Concomitant]
     Active Substance: PREDNISONE
  2. ARAVA [Concomitant]
     Active Substance: LEFLUNOMIDE
  3. BIOTIN POW [Concomitant]
  4. TOPRAMATE [Concomitant]
  5. SYNTHROID [Concomitant]
     Active Substance: LEVOTHYROXINE SODIUM
  6. EVOXAC [Concomitant]
     Active Substance: CEVIMELINE HYDROCHLORIDE
  7. ROSUVASTATIN. [Concomitant]
     Active Substance: ROSUVASTATIN
  8. BENLYSTA [Concomitant]
     Active Substance: BELIMUMAB
  9. LEVOTHYROXIN [Concomitant]
     Active Substance: LEVOTHYROXINE
  10. LIOTHYROXINE [Concomitant]
  11. LUNESTA [Concomitant]
     Active Substance: ESZOPICLONE
  12. SINGULAIR [Concomitant]
     Active Substance: MONTELUKAST SODIUM
  13. ASPIRIN. [Concomitant]
     Active Substance: ASPIRIN
  14. ZINC SULFATE TAB [Concomitant]
  15. ECZOPICLONE [Concomitant]
  16. PHENTERMINE. [Concomitant]
     Active Substance: PHENTERMINE
  17. TOPIRAMATE. [Concomitant]
     Active Substance: TOPIRAMATE
  18. AMLOD/VALSAR TAB [Concomitant]
  19. VITAMIN D3 [Concomitant]
     Active Substance: CHOLECALCIFEROL
  20. TUMERIC POW ROOT [Concomitant]
  21. PLAQUENIL [Concomitant]
     Active Substance: HYDROXYCHLOROQUINE SULFATE
  22. PREMPRO [Concomitant]
     Active Substance: ESTROGENS, CONJUGATED\MEDROXYPROGESTERONE ACETATE
  23. COQ10 [Suspect]
     Active Substance: UBIDECARENONE
  24. BENLYSTA [Suspect]
     Active Substance: BELIMUMAB
     Indication: SYSTEMIC LUPUS ERYTHEMATOSUS
     Route: 058
     Dates: start: 20180911
  25. HYDROXYCHLOR [Concomitant]
     Active Substance: HYDROXYCHLOROQUINE
  26. PANTOPRAZOLE [Concomitant]
     Active Substance: PANTOPRAZOLE
  27. PHENTERMINE. [Concomitant]
     Active Substance: PHENTERMINE
  28. RESTASIS [Concomitant]
     Active Substance: CYCLOSPORINE
  29. HYDROCO/APAP [Concomitant]
     Active Substance: ACETAMINOPHEN\HYDROCODONE
  30. BELVIQ [Concomitant]
     Active Substance: LORCASERIN HYDROCHLORIDE
  31. MONTELUKAST [Concomitant]
     Active Substance: MONTELUKAST SODIUM
  32. CEYMEUNE [Concomitant]
  33. HIZENTRA [Concomitant]
     Active Substance: HUMAN IMMUNOGLOBULIN G
  34. LEFLUNOMIDE. [Concomitant]
     Active Substance: LEFLUNOMIDE
  35. AMLODIPINE [Concomitant]
     Active Substance: AMLODIPINE BESYLATE
  36. AMLODIPINE [Concomitant]
     Active Substance: AMLODIPINE BESYLATE

REACTIONS (1)
  - Large intestine infection [None]

NARRATIVE: CASE EVENT DATE: 20190821
